FAERS Safety Report 25158872 (Version 2)
Quarter: 2025Q2

REPORT INFORMATION
  Report Type: Spontaneous
  Country: BR (occurrence: BR)
  Receive Date: 20250404
  Receipt Date: 20250418
  Transmission Date: 20250717
  Serious: Yes (Death, Other)
  Sender: MUNDIPHARMA EDO
  Company Number: BR-NAPPMUNDI-GBR-2025-0124638

PATIENT
  Sex: Female

DRUGS (26)
  1. REZAFUNGIN ACETATE [Suspect]
     Active Substance: REZAFUNGIN ACETATE
     Indication: Systemic candida
  2. REZAFUNGIN ACETATE [Suspect]
     Active Substance: REZAFUNGIN ACETATE
  3. MEROPENEM [Concomitant]
     Active Substance: MEROPENEM
     Indication: Product used for unknown indication
     Dosage: 1G FOR INJECTION SOLUTION; 2.00  MILLIGRAM/MINUTE 1 VIAL WITH 1000 MG
     Dates: start: 20250302
  4. LORAZEPAM [Concomitant]
     Active Substance: LORAZEPAM
     Indication: Product used for unknown indication
     Route: 065
  5. Hemofol [Concomitant]
     Indication: Product used for unknown indication
     Dosage: INJECTABLE  5000 IU/0.25 ML,  SUBCUTANEOUS 1 AMPOULE 0.25ML
     Route: 058
     Dates: start: 20250302
  6. Hemofol [Concomitant]
     Dosage: INJECTABLE  5000 IU/0.25 ML,  SUBACUTANEOUS 1 AMPOULE  0.25ML SUBCUTANEOUS EVERY 12 HOURS
     Route: 058
     Dates: start: 20250309
  7. FENTANYL CITRATE [Concomitant]
     Active Substance: FENTANYL CITRATE
     Indication: Product used for unknown indication
  8. SALINE [Concomitant]
     Active Substance: SODIUM CHLORIDE
     Indication: Product used for unknown indication
  9. NPH INSULIN [Concomitant]
     Active Substance: INSULIN BEEF
     Indication: Product used for unknown indication
     Route: 058
  10. NPH INSULIN [Concomitant]
     Active Substance: INSULIN BEEF
     Route: 058
  11. NOREPINEPHRINE [Concomitant]
     Active Substance: NOREPINEPHRINE
     Indication: Product used for unknown indication
     Route: 065
  12. NOREPINEPHRINE [Concomitant]
     Active Substance: NOREPINEPHRINE
     Route: 065
  13. DEXTROSE [Concomitant]
     Active Substance: DEXTROSE MONOHYDRATE
     Indication: Product used for unknown indication
     Route: 065
  14. DEXTROSE [Concomitant]
     Active Substance: DEXTROSE MONOHYDRATE
     Route: 065
  15. CHLORHEXIDINE [Concomitant]
     Active Substance: CHLORHEXIDINE
     Indication: Product used for unknown indication
     Dosage: 0.12%, 10ML (INDAHEX) 1 VIAL  C/10ML
     Route: 048
     Dates: start: 20250302, end: 202503
  16. CHLORHEXIDINE [Concomitant]
     Active Substance: CHLORHEXIDINE
     Dosage: 0.12%, 10ML (INDAHEX) 1 VIAL  WITH 10ML
     Route: 048
     Dates: start: 20250309
  17. CARBOXYMETHYLCELLULOSE SODIUM [Concomitant]
     Active Substance: CARBOXYMETHYLCELLULOSE SODIUM
     Indication: Product used for unknown indication
     Route: 047
  18. CARBOXYMETHYLCELLULOSE SODIUM [Concomitant]
     Active Substance: CARBOXYMETHYLCELLULOSE SODIUM
     Route: 047
  19. PREGABALIN [Concomitant]
     Active Substance: PREGABALIN
     Indication: Product used for unknown indication
     Dosage: N 25MG/ML 60ML  VIAL 2 MILLILITRE
     Route: 048
     Dates: start: 20250302, end: 202503
  20. PREGABALIN [Concomitant]
     Active Substance: PREGABALIN
     Dosage: 25MG/ML BOTTLE  WITH 60ML 2 MILLILITRES ORAL 1X  DAIL
     Route: 048
     Dates: start: 20250309, end: 202503
  21. KETAMIN [Concomitant]
     Active Substance: KETAMINE
     Indication: Product used for unknown indication
     Route: 065
  22. KETAMIN [Concomitant]
     Active Substance: KETAMINE
     Route: 065
  23. TEICOPLANIN [Concomitant]
     Active Substance: TEICOPLANIN
     Indication: Product used for unknown indication
  24. RACECADOTRIL [Concomitant]
     Active Substance: RACECADOTRIL
     Indication: Product used for unknown indication
     Dosage: 1 SACHET IF  NECESSARY EVERY 12 HOURS
     Route: 065
     Dates: start: 20250302
  25. VASOPRESSIN [Concomitant]
     Active Substance: VASOPRESSIN
     Indication: Product used for unknown indication
     Route: 065
  26. METHADONE [Concomitant]
     Active Substance: METHADONE HYDROCHLORIDE
     Indication: Product used for unknown indication
     Dosage: 1MG/ML SYRUP 2.5 MILLILITRES IF  NECESSARY
     Route: 065
     Dates: start: 20250309

REACTIONS (1)
  - Cerebrovascular accident [Fatal]

NARRATIVE: CASE EVENT DATE: 20250315
